FAERS Safety Report 9133056 (Version 1)
Quarter: 2013Q1

REPORT INFORMATION
  Report Type: Report from Study
  Country: FR (occurrence: FR)
  Receive Date: 20130301
  Receipt Date: 20130301
  Transmission Date: 20140127
  Serious: Yes (Hospitalization)
  Sender: FDA-Public Use
  Company Number: FR-ROCHE-1194229

PATIENT
  Age: 54 Year
  Sex: Female
  Weight: 101 kg

DRUGS (19)
  1. TOCILIZUMAB [Suspect]
     Indication: RHEUMATOID ARTHRITIS
     Route: 041
     Dates: start: 20100603
  2. METHOTREXATE [Suspect]
     Indication: PRODUCT USED FOR UNKNOWN INDICATION
     Route: 065
     Dates: start: 20100603
  3. METHOTREXATE [Suspect]
     Route: 065
  4. METHOTREXATE [Suspect]
     Route: 065
     Dates: end: 20120717
  5. RIMIFON [Concomitant]
     Route: 065
     Dates: end: 20110428
  6. CORTANCYL [Concomitant]
     Route: 065
  7. CORTANCYL [Concomitant]
     Route: 065
  8. CORTANCYL [Concomitant]
     Route: 065
  9. SPECIAFOLDINE [Concomitant]
     Route: 065
  10. SKENAN LP [Concomitant]
     Route: 065
  11. LEXOMIL [Concomitant]
  12. IMOVANE [Concomitant]
  13. NOVOMIX [Concomitant]
  14. LACTULOSE [Concomitant]
  15. METFORMIN [Concomitant]
  16. CACIT D3 [Concomitant]
  17. BONVIVA [Concomitant]
     Route: 065
  18. PIASCLEDINE (FRANCE) [Concomitant]
  19. SKENAN [Concomitant]

REACTIONS (6)
  - Gastrectomy [Recovered/Resolved]
  - Hypochromic anaemia [Recovered/Resolved]
  - Laryngitis [Recovered/Resolved]
  - Leukocyturia [Recovered/Resolved]
  - Hepatocellular injury [Not Recovered/Not Resolved]
  - Abdominal pain lower [Recovered/Resolved]
